FAERS Safety Report 6727857-3 (Version None)
Quarter: 2010Q2

REPORT INFORMATION
  Report Type: 
  Country: None (occurrence: None)
  Receive Date: 20100517
  Receipt Date: 20100504
  Transmission Date: 20101027
  Serious: Yes (Other)
  Sender: FDA-Public Use
  Company Number: ES-ELI_LILLY_AND_COMPANY-ES201005001245

PATIENT
  Sex: Female
  Weight: 65 kg

DRUGS (6)
  1. FORTEO [Suspect]
     Indication: FRACTURE
     Dosage: 20 UG, DAILY (1/D)
     Route: 058
     Dates: start: 20090501
  2. CONDROSULF [Concomitant]
     Indication: ARTHRITIS
     Dosage: 400 MG, (2 DAYS EVERY 3 MONTHS STOP 1 MONTH AND BEGIN TREATMENT FOR ANOTHER 3 MONTHS) OTHER
  3. NATECAL [Concomitant]
     Indication: OSTEOPOROSIS
     Dosage: UNK, (2 DAYS) OTHER
     Route: 048
  4. OMEPRAZOLE [Concomitant]
     Indication: ABDOMINAL PAIN UPPER
     Dosage: 20 MG, UNKNOWN
     Route: 048
  5. IBUPROFEN [Concomitant]
     Indication: PAIN
     Dosage: 600 MG, AS NEEDED
     Route: 048
  6. XUMADOL [Concomitant]
     Indication: PAIN
     Dosage: 1 G, AS NEEDED
     Route: 048

REACTIONS (1)
  - FOREARM FRACTURE [None]
